FAERS Safety Report 23271914 (Version 1)
Quarter: 2023Q4

REPORT INFORMATION
  Report Type: Spontaneous
  Country: US (occurrence: US)
  Receive Date: 20231207
  Receipt Date: 20231207
  Transmission Date: 20240110
  Serious: No
  Sender: FDA-Public Use
  Company Number: US-KARYOPHARM-2023KPT002105

PATIENT

DRUGS (7)
  1. XPOVIO [Suspect]
     Active Substance: SELINEXOR
     Indication: Brain neoplasm malignant
     Dosage: 40 MG, ONCE WEEKLY
     Route: 048
     Dates: start: 2023
  2. LORAZEPAM [Concomitant]
     Active Substance: LORAZEPAM
  3. MAGNESIUM [Concomitant]
     Active Substance: MAGNESIUM
  4. ONFI [Concomitant]
     Active Substance: CLOBAZAM
  5. PANTOPRAZOLE [Concomitant]
     Active Substance: PANTOPRAZOLE
  6. XARELTO [Concomitant]
     Active Substance: RIVAROXABAN
  7. ZOFRAN [Concomitant]
     Active Substance: ONDANSETRON HYDROCHLORIDE

REACTIONS (2)
  - Off label use [Unknown]
  - No adverse event [Unknown]

NARRATIVE: CASE EVENT DATE: 20230101
